FAERS Safety Report 17461065 (Version 1)
Quarter: 2020Q1

REPORT INFORMATION
  Report Type: Spontaneous
  Country: US (occurrence: US)
  Receive Date: 20200226
  Receipt Date: 20200226
  Transmission Date: 20200409
  Serious: Yes (Other)
  Sender: FDA-Public Use
  Company Number: US-PFIZER INC-2020076033

PATIENT
  Age: 27 Year
  Sex: Male

DRUGS (4)
  1. TESTOSTERONE CIPIONATE [Suspect]
     Active Substance: TESTOSTERONE
     Indication: STEROID THERAPY
     Dosage: UNK
  2. TRENBOLONE [Suspect]
     Active Substance: TRENBOLONE
     Indication: STEROID THERAPY
     Dosage: UNK
  3. METHASTERONE. [Suspect]
     Active Substance: METHASTERONE
     Indication: STEROID THERAPY
     Dosage: UNK
  4. OXANDROLONE. [Suspect]
     Active Substance: OXANDROLONE
     Indication: STEROID THERAPY
     Dosage: UNK

REACTIONS (3)
  - Drug-induced liver injury [Recovering/Resolving]
  - Drug abuse [Unknown]
  - Cholestasis [Recovering/Resolving]
